FAERS Safety Report 5293239-7 (Version None)
Quarter: 2007Q2

REPORT INFORMATION
  Report Type: 
  Country: None (occurrence: None)
  Receive Date: 20070411
  Receipt Date: 20070405
  Transmission Date: 20071010
  Serious: Yes (Hospitalization)
  Sender: FDA-Public Use
  Company Number: NZ-AVENTIS-200711736EU

PATIENT
  Age: 73 Year
  Sex: Female

DRUGS (14)
  1. ENOXAPARIN SODIUM [Suspect]
     Route: 058
     Dates: start: 20060907, end: 20060918
  2. DILTIAZEM HYDROCHLORIDE [Concomitant]
     Dosage: DOSE: 240 MG, 120MG
     Route: 048
  3. LIPEX                              /00848101/ [Concomitant]
     Route: 048
     Dates: start: 20060430
  4. ISOSORBIDE MONONITRATE [Concomitant]
     Dosage: DOSE: 40 MG, 20 MG , 60 MG
     Route: 048
  5. NAPROXEN [Concomitant]
     Route: 048
  6. ASPIRIN [Concomitant]
     Dosage: DOSE: 50MG, 100MG,100MG
     Route: 048
  7. MULTI-VITAMINS [Concomitant]
     Route: 048
  8. FLUTICASONE PROPIONATE [Concomitant]
     Route: 055
  9. COMBIVENT                          /01033501/ [Concomitant]
  10. COMBIVENT                          /01033501/ [Concomitant]
     Indication: ASTHMA
  11. FLIXOTIDE [Concomitant]
  12. PARACETAMOL [Concomitant]
     Indication: PAIN MANAGEMENT
  13. TRAMADOL HCL [Concomitant]
     Indication: PAIN MANAGEMENT
     Dosage: DOSE: 50 MG, 50-100MG
  14. IBUPROFEN [Concomitant]
     Indication: PAIN MANAGEMENT

REACTIONS (1)
  - ARTHRALGIA [None]
